FAERS Safety Report 6161644-2 (Version None)
Quarter: 2009Q2

REPORT INFORMATION
  Report Type: 
  Country: None (occurrence: None)
  Receive Date: 20090417
  Receipt Date: 20090105
  Transmission Date: 20091009
  Serious: Yes (Life-Threatening, Hospitalization, Other)
  Sender: FDA-Public Use
  Company Number: AMAN20090001

PATIENT
  Age: 47 Year
  Sex: Female

DRUGS (4)
  1. AMANTADINE HCL [Suspect]
     Dosage: 10 GM, ONCE, PER ORAL
     Route: 048
  2. DIPHENHYDRAMINE HCL [Suspect]
     Dosage: 250 MG, ONCE, PER ORAL
     Route: 048
  3. HALOPERIDOL [Concomitant]
  4. METABOLIFE [Concomitant]

REACTIONS (12)
  - BLOOD BICARBONATE DECREASED [None]
  - BLOOD PH INCREASED [None]
  - CARDIAC ARREST [None]
  - DRUG TOXICITY [None]
  - ELECTROCARDIOGRAM QRS COMPLEX PROLONGED [None]
  - HYPOKALAEMIA [None]
  - MULTIPLE DRUG OVERDOSE INTENTIONAL [None]
  - PCO2 DECREASED [None]
  - PO2 INCREASED [None]
  - RESPIRATION ABNORMAL [None]
  - SINUS BRADYCARDIA [None]
  - VENTRICULAR TACHYCARDIA [None]
